FAERS Safety Report 16180088 (Version 1)
Quarter: 2019Q2

REPORT INFORMATION
  Report Type: Spontaneous
  Country: PT (occurrence: PT)
  Receive Date: 20190410
  Receipt Date: 20190410
  Transmission Date: 20190711
  Serious: Yes (Other)
  Sender: FDA-Public Use
  Company Number: PT-GLAXOSMITHKLINE-PT2019063611

PATIENT
  Age: 73 Year
  Sex: Male

DRUGS (1)
  1. COMBODART [Suspect]
     Active Substance: DUTASTERIDE\TAMSULOSIN
     Indication: BENIGN PROSTATIC HYPERPLASIA
     Dosage: 0.9 MG, QD
     Route: 048
     Dates: start: 201812

REACTIONS (2)
  - Dysuria [Recovered/Resolved]
  - Urinary tract pain [Recovered/Resolved]
